FAERS Safety Report 13641346 (Version 1)
Quarter: 2017Q2

REPORT INFORMATION
  Report Type: Spontaneous
  Country: US (occurrence: US)
  Receive Date: 20170612
  Receipt Date: 20170612
  Transmission Date: 20170830
  Serious: No
  Sender: FDA-Public Use
  Company Number: US-TEVA-737666ACC

PATIENT
  Age: 66 Year
  Sex: Female

DRUGS (2)
  1. ACTONEL [Suspect]
     Active Substance: RISEDRONATE SODIUM
     Indication: OSTEOPOROSIS
     Dosage: 5 MILLIGRAM DAILY; ONCE MONTHLY
     Route: 048
     Dates: start: 200903, end: 201308
  2. TRAZODONE [Concomitant]
     Active Substance: TRAZODONE HYDROCHLORIDE
     Indication: INSOMNIA
     Route: 048

REACTIONS (1)
  - Lichen planus [Not Recovered/Not Resolved]

NARRATIVE: CASE EVENT DATE: 201306
